FAERS Safety Report 19201391 (Version 1)
Quarter: 2021Q2

REPORT INFORMATION
  Report Type: Spontaneous
  Country: US (occurrence: US)
  Receive Date: 20210430
  Receipt Date: 20210430
  Transmission Date: 20210717
  Serious: No
  Sender: FDA-Public Use
  Company Number: US-MYLANLABS-2021M1024356

PATIENT
  Sex: Female

DRUGS (1)
  1. TRETINOIN GEL, USP (MICROSPHERE) 0.04% [Suspect]
     Active Substance: TRETINOIN
     Indication: PRODUCT USED FOR UNKNOWN INDICATION
     Dosage: 20 GRAM
     Route: 061

REACTIONS (1)
  - Drug hypersensitivity [Unknown]
